FAERS Safety Report 8195444-9 (Version None)
Quarter: 2012Q1

REPORT INFORMATION
  Report Type: 
  Country: None (occurrence: None)
  Receive Date: 20120308
  Receipt Date: 20120228
  Transmission Date: 20120608
  Serious: Yes (Hospitalization)
  Sender: FDA-Public Use
  Company Number: PHEH2012US002589

PATIENT
  Sex: Female

DRUGS (6)
  1. EXJADE [Suspect]
     Indication: IRON OVERLOAD
     Dosage: 750 MG, DAILY
     Route: 048
     Dates: start: 20110401, end: 20110601
  2. PEPCID [Concomitant]
     Dosage: 10 MG, UNK
     Route: 048
     Dates: start: 20120113
  3. EXJADE [Suspect]
     Dosage: 750 MG, DAILY
     Route: 048
  4. ALBUTEROL [Concomitant]
     Indication: ASTHMA
     Dates: start: 20090101
  5. EXJADE [Suspect]
     Dosage: 750 MG, DAILY
     Route: 048
     Dates: end: 20120113
  6. ASPIRIN [Concomitant]
     Dosage: 81 MG, UNK
     Route: 048
     Dates: start: 20110101

REACTIONS (8)
  - ABDOMINAL DISCOMFORT [None]
  - ALBUMIN GLOBULIN RATIO DECREASED [None]
  - LIVER FUNCTION TEST ABNORMAL [None]
  - BLOOD BILIRUBIN INCREASED [None]
  - ASPARTATE AMINOTRANSFERASE INCREASED [None]
  - PANCREATITIS [None]
  - GASTROINTESTINAL DISORDER [None]
  - ALANINE AMINOTRANSFERASE INCREASED [None]
